FAERS Safety Report 22341387 (Version 2)
Quarter: 2024Q1

REPORT INFORMATION
  Report Type: Spontaneous
  Country: US (occurrence: US)
  Receive Date: 20230518
  Receipt Date: 20240111
  Transmission Date: 20240410
  Serious: Yes (Disabling, Other)
  Sender: FDA-Public Use
  Company Number: US-HORIZON THERAPEUTICS-HZN-2023-003623

PATIENT

DRUGS (9)
  1. TEPEZZA [Suspect]
     Active Substance: TEPROTUMUMAB-TRBW
     Indication: Endocrine ophthalmopathy
     Dosage: FIRST INFUSION
     Route: 042
     Dates: start: 20220310
  2. TEPEZZA [Suspect]
     Active Substance: TEPROTUMUMAB-TRBW
     Indication: Graves^ disease
     Dosage: SECOND INFUSION
     Route: 042
     Dates: start: 20220331
  3. TEPEZZA [Suspect]
     Active Substance: TEPROTUMUMAB-TRBW
     Dosage: THIRD INFUSION
     Route: 042
     Dates: start: 20220421
  4. TEPEZZA [Suspect]
     Active Substance: TEPROTUMUMAB-TRBW
     Dosage: FOURTH INFUSION
     Route: 042
     Dates: start: 20220512
  5. TEPEZZA [Suspect]
     Active Substance: TEPROTUMUMAB-TRBW
     Dosage: FIFTH INFUSION
     Route: 042
     Dates: start: 20220602, end: 20220602
  6. VENTOLIN [Concomitant]
     Active Substance: ALBUTEROL SULFATE
     Dosage: DAILY
  7. QVAR [Concomitant]
     Active Substance: BECLOMETHASONE DIPROPIONATE
     Dosage: DAILY
  8. ASPIRIN [Concomitant]
     Active Substance: ASPIRIN
     Dosage: 1 DOSAGE FORM, QD
     Route: 048
  9. DEXAMETHASONE\NEOMYCIN SULFATE\POLYMYXIN B SULFATE [Concomitant]
     Active Substance: DEXAMETHASONE\NEOMYCIN SULFATE\POLYMYXIN B SULFATE
     Dosage: 3.5 MG/ML-10,000 UNIT/ML-0.1% EYE DROPS

REACTIONS (23)
  - Physical disability [Not Recovered/Not Resolved]
  - Disability [Not Recovered/Not Resolved]
  - Anxiety [Not Recovered/Not Resolved]
  - Concomitant disease aggravated [Not Recovered/Not Resolved]
  - Pain [Not Recovered/Not Resolved]
  - Injury [Not Recovered/Not Resolved]
  - Emotional distress [Not Recovered/Not Resolved]
  - Impaired quality of life [Not Recovered/Not Resolved]
  - Discomfort [Not Recovered/Not Resolved]
  - Auditory disorder [Not Recovered/Not Resolved]
  - Ear discomfort [Unknown]
  - Therapeutic product effect incomplete [Unknown]
  - Muscle spasms [Unknown]
  - Hypoacusis [Unknown]
  - Diarrhoea [Unknown]
  - Tinnitus [Unknown]
  - Hypothyroidism [Recovering/Resolving]
  - Heart rate increased [Unknown]
  - Eyelid ptosis [Unknown]
  - Dermatochalasis [Unknown]
  - Eyelid retraction [Unknown]
  - Product quality issue [Unknown]
  - Economic problem [Not Recovered/Not Resolved]

NARRATIVE: CASE EVENT DATE: 20220101
